FAERS Safety Report 7841068-X (Version None)
Quarter: 2011Q4

REPORT INFORMATION
  Report Type: 
  Country: None (occurrence: None)
  Receive Date: 20111025
  Receipt Date: 20111007
  Transmission Date: 20120403
  Serious: No
  Sender: FDA-Public Use
  Company Number: US-BAYER-2011-098852

PATIENT

DRUGS (1)
  1. LEUKINE [Suspect]
     Dosage: UNK

REACTIONS (4)
  - DYSPNOEA [None]
  - FLUSHING [None]
  - RASH [None]
  - NAUSEA [None]
